FAERS Safety Report 10399319 (Version 1)
Quarter: 2014Q3

REPORT INFORMATION
  Report Type: Spontaneous
  Country: KR (occurrence: None)
  Receive Date: 20140819
  Receipt Date: 20140819
  Transmission Date: 20150326
  Serious: Yes (Hospitalization)
  Sender: FDA-Public Use
  Company Number: FK201403313

PATIENT
  Age: 40 Year
  Sex: Female

DRUGS (4)
  1. DEXAMETHASONE INJECTION (MANUFCTURER UNKNOWN) (DEXAMETHASONE SODIUM PHOSPHATE) (DEXAMETHASONE SODIUM PHOSPHATE)? [Suspect]
     Active Substance: DEXAMETHASONE
     Indication: PREMEDICATION
  2. TAMOXIFEN (MANUFACTURER UNKNOWN) (TAMOXIFEN) (TAMOXIFEN) [Suspect]
     Active Substance: TAMOXIFEN
     Indication: INVASIVE DUCTAL BREAST CARCINOMA
     Dosage: 20 MG, 1 IN 1 D, ORAL
     Route: 048
  3. PACLITAXEL (PACLITAXEL) [Concomitant]
     Active Substance: PACLITAXEL
  4. HYDROCORTISONE (HYDROCORTISONE) [Concomitant]
     Active Substance: HYDROCORTISONE

REACTIONS (4)
  - Hypertriglyceridaemia [None]
  - Pancreatitis necrotising [None]
  - Pancreatitis acute [None]
  - Type 2 diabetes mellitus [None]
